FAERS Safety Report 9630083 (Version 2)
Quarter: 2013Q4

REPORT INFORMATION
  Report Type: Spontaneous
  Country: US (occurrence: US)
  Receive Date: 20131017
  Receipt Date: 20131017
  Transmission Date: 20140711
  Serious: No
  Sender: FDA-Public Use
  Company Number: US-BAXTER-2012BAX017280

PATIENT
  Age: 83 Year
  Sex: Female

DRUGS (1)
  1. DIANEAL LOW CALCIUM [Suspect]
     Indication: PERITONEAL DIALYSIS
     Dosage: UNKNOWN
     Route: 033
     Dates: start: 20030604

REACTIONS (2)
  - Confusional state [Not Recovered/Not Resolved]
  - Accidental exposure to product [Recovered/Resolved]
